FAERS Safety Report 6232483-9 (Version None)
Quarter: 2009Q2

REPORT INFORMATION
  Report Type: 
  Country: None (occurrence: None)
  Receive Date: 20090615
  Receipt Date: 20090615
  Transmission Date: 20091009
  Serious: No
  Sender: FDA-Public Use
  Company Number: None

PATIENT
  Age: 58 Year
  Sex: Male
  Weight: 88.4514 kg

DRUGS (1)
  1. LYRICA [Suspect]
     Indication: NEURALGIA
     Dosage: 1 X 3 D
     Dates: start: 20090401

REACTIONS (3)
  - PURULENCE [None]
  - RASH [None]
  - WHITE BLOOD CELL COUNT INCREASED [None]
